FAERS Safety Report 8231736-2 (Version None)
Quarter: 2012Q1

REPORT INFORMATION
  Report Type: 
  Country: None (occurrence: None)
  Receive Date: 20120320
  Receipt Date: 20120314
  Transmission Date: 20120608
  Serious: Yes (Other)
  Sender: FDA-Public Use
  Company Number: GER/GER/12/0023504

PATIENT
  Age: 22 Year
  Sex: Female
  Weight: 65 kg

DRUGS (4)
  1. LAMOTRIGINE [Suspect]
     Indication: EPILEPSY
     Dosage: 100 MG, 1 IN 1 D, ORAL, 350 MG, 1 IN 1 D, ORAL
     Route: 048
     Dates: end: 20100406
  2. LAMOTRIGINE [Suspect]
     Indication: EPILEPSY
     Dosage: 100 MG, 1 IN 1 D, ORAL, 350 MG, 1 IN 1 D, ORAL
     Route: 048
  3. LAMOTRIGINE [Suspect]
     Indication: EPILEPSY
     Dosage: 100 MG, 1 IN 1 D, ORAL, 350 MG, 1 IN 1 D, ORAL
     Route: 048
     Dates: start: 20090410, end: 20100106
  4. FOLIC ACID [Concomitant]

REACTIONS (3)
  - VENTRICULAR SEPTAL DEFECT [None]
  - CAESAREAN SECTION [None]
  - MATERNAL EXPOSURE DURING PREGNANCY [None]
